FAERS Safety Report 8054213-0 (Version None)
Quarter: 2012Q1

REPORT INFORMATION
  Report Type: 
  Country: None (occurrence: None)
  Receive Date: 20120118
  Receipt Date: 20120109
  Transmission Date: 20120608
  Serious: Yes (Hospitalization)
  Sender: FDA-Public Use
  Company Number: FR-ASTRAZENECA-2012SE02887

PATIENT
  Sex: Female

DRUGS (8)
  1. CRESTOR [Suspect]
     Route: 048
  2. METFORMIN HCL [Suspect]
     Dosage: DAILY
     Route: 048
  3. CORDARONE [Suspect]
     Indication: ATRIAL FIBRILLATION
     Route: 048
     Dates: end: 20111224
  4. PREVISCAN [Suspect]
     Indication: ATRIAL FIBRILLATION
     Dosage: DAILY
     Route: 048
  5. IRBESARTAN AND HYDROCHLOROTHIAZIDE [Suspect]
     Indication: HYPERTENSION
     Dosage: DAILY
     Route: 048
  6. BISOPROLOL FUMARATE [Suspect]
     Indication: HYPERTENSION
     Dosage: DAILY
     Route: 048
  7. REPAGLINIDE [Suspect]
     Indication: TYPE 2 DIABETES MELLITUS
     Dosage: DAILY
     Route: 048
  8. LEVEMIR [Suspect]
     Indication: TYPE 2 DIABETES MELLITUS
     Route: 058

REACTIONS (1)
  - INTERSTITIAL LUNG DISEASE [None]
